FAERS Safety Report 16365089 (Version 1)
Quarter: 2019Q2

REPORT INFORMATION
  Report Type: Spontaneous
  Country: US (occurrence: US)
  Receive Date: 20190529
  Receipt Date: 20190529
  Transmission Date: 20190711
  Serious: No
  Sender: FDA-Public Use
  Company Number: US-HORIZON-ACT-0155-2019

PATIENT
  Age: 32 Year
  Sex: Male

DRUGS (1)
  1. ACTIMMUNE [Suspect]
     Active Substance: INTERFERON GAMMA-1B
     Indication: OSTEOMYELITIS CHRONIC
     Dosage: 70 MCG THREE TIMES A WEEK
     Route: 058

REACTIONS (2)
  - Malaise [Unknown]
  - Off label use [Unknown]
